FAERS Safety Report 4429863-0 (Version None)
Quarter: 2004Q3

REPORT INFORMATION
  Report Type: 
  Country: None (occurrence: None)
  Receive Date: 20040820
  Receipt Date: 20040810
  Transmission Date: 20050211
  Serious: Yes (Death)
  Sender: FDA-Public Use
  Company Number: FR-JNJFOC-20040303693

PATIENT
  Age: 72 Year
  Sex: Female
  Weight: 50 kg

DRUGS (6)
  1. RISPERDAL [Suspect]
     Indication: DELUSION
     Route: 049
     Dates: start: 20040309, end: 20040311
  2. RISPERDAL [Suspect]
     Route: 049
     Dates: start: 20040309, end: 20040311
  3. RISPERDAL CONSTA [Suspect]
     Route: 030
  4. DEROXAT [Concomitant]
  5. LYSANXIA [Concomitant]
  6. DUPHALAC [Concomitant]

REACTIONS (14)
  - ATRIOVENTRICULAR BLOCK SECOND DEGREE [None]
  - BALANCE DISORDER [None]
  - BRADYCARDIA [None]
  - DRUG INTERACTION [None]
  - HYPOTENSION [None]
  - HYPOTHERMIA [None]
  - INCOHERENT [None]
  - LUNG INFECTION [None]
  - OVERDOSE [None]
  - PANCYTOPENIA [None]
  - SEPTIC SHOCK [None]
  - SPEECH DISORDER [None]
  - STAPHYLOCOCCAL SEPSIS [None]
  - VENTRICULAR EXTRASYSTOLES [None]
